FAERS Safety Report 5147904-2 (Version None)
Quarter: 2006Q4

REPORT INFORMATION
  Report Type: 
  Country: None (occurrence: None)
  Receive Date: 20061106
  Receipt Date: 20061023
  Transmission Date: 20070319
  Serious: Yes (Hospitalization)
  Sender: FDA-Public Use
  Company Number: 2006107237

PATIENT
  Age: 41 Year
  Sex: Male
  Weight: 108 kg

DRUGS (11)
  1. SUTENT [Suspect]
     Indication: NON-SMALL CELL LUNG CANCER
     Dosage: 50 MG (50 MG, 1 IN 1 D),ORAL
     Route: 048
     Dates: start: 20060612, end: 20060821
  2. CALCIUM (CALCIUM) [Concomitant]
  3. MULTIVITAMIN [Concomitant]
  4. ADVIL [Concomitant]
  5. SPIRIVA [Concomitant]
  6. BUDESONIDE [Concomitant]
  7. PROTONIX [Concomitant]
  8. ZOLOFT [Concomitant]
  9. LORAZEPAM [Concomitant]
  10. OXYCODONE HCL [Concomitant]
  11. OXYCONTIN [Concomitant]

REACTIONS (5)
  - METASTASES TO BONE [None]
  - PAIN [None]
  - PNEUMONIA [None]
  - SPUTUM CULTURE POSITIVE [None]
  - STAPHYLOCOCCAL INFECTION [None]
